FAERS Safety Report 24374176 (Version 1)
Quarter: 2024Q3

REPORT INFORMATION
  Report Type: Report from Study
  Country: CA (occurrence: CA)
  Receive Date: 20240927
  Receipt Date: 20240927
  Transmission Date: 20241017
  Serious: Yes (Other)
  Sender: SANDOZ
  Company Number: CA-SANDOZ-SDZ2024CA071916

PATIENT
  Sex: Female

DRUGS (2)
  1. ERELZI [Suspect]
     Active Substance: ETANERCEPT-SZZS
     Indication: Psoriasis
     Dosage: 50 MG, BIW  (PRE-FILLED SYRINGE)
     Route: 058
     Dates: start: 20220502, end: 202407
  2. ERELZI [Suspect]
     Active Substance: ETANERCEPT-SZZS
     Dosage: 50 MG, BIW  (PRE-FILLED SYRINGE)
     Route: 058
     Dates: start: 20240910

REACTIONS (6)
  - Pertussis [Unknown]
  - Injection site vesicles [Unknown]
  - Injection site warmth [Unknown]
  - Injection site pain [Unknown]
  - Psoriasis [Unknown]
  - Injection site erythema [Unknown]
